FAERS Safety Report 13900162 (Version 1)
Quarter: 2017Q3

REPORT INFORMATION
  Report Type: Spontaneous
  Country: US (occurrence: None)
  Receive Date: 20170824
  Receipt Date: 20170824
  Transmission Date: 20171127
  Serious: Yes (Hospitalization)
  Sender: FDA-Public Use
  Company Number: None

PATIENT
  Age: 65 Year
  Sex: Female

DRUGS (11)
  1. METOCLOPRAM [Concomitant]
     Active Substance: METOCLOPRAMIDE
  2. LETROZOLE. [Concomitant]
     Active Substance: LETROZOLE
  3. OXYCODONE [Concomitant]
     Active Substance: OXYCODONE
  4. GABAPENTIN. [Concomitant]
     Active Substance: GABAPENTIN
  5. CARVEDILOL. [Concomitant]
     Active Substance: CARVEDILOL
  6. MORPHINE [Concomitant]
     Active Substance: MORPHINE
  7. MIRTAZAPINE. [Concomitant]
     Active Substance: MIRTAZAPINE
  8. IBRANCE [Suspect]
     Active Substance: PALBOCICLIB
     Indication: NEOPLASM MALIGNANT
     Route: 048
     Dates: start: 20161206
  9. LISINOPRIL. [Concomitant]
     Active Substance: LISINOPRIL
  10. SERTRALINE [Concomitant]
     Active Substance: SERTRALINE HYDROCHLORIDE
  11. FLUTICASONE. [Concomitant]
     Active Substance: FLUTICASONE

REACTIONS (2)
  - Gastric infection [None]
  - White blood cell count decreased [None]

NARRATIVE: CASE EVENT DATE: 20170818
